FAERS Safety Report 14467201 (Version 1)
Quarter: 2018Q1

REPORT INFORMATION
  Report Type: Spontaneous
  Country: GB (occurrence: GB)
  Receive Date: 20180131
  Receipt Date: 20180131
  Transmission Date: 20180509
  Serious: Yes (Other)
  Sender: FDA-Public Use
  Company Number: GB-009507513-1801GBR008067

PATIENT
  Age: 20 Year
  Sex: Female
  Weight: 42 kg

DRUGS (7)
  1. BETAMETHASONE VALERATE. [Concomitant]
     Active Substance: BETAMETHASONE VALERATE
     Dosage: 2 DF, QD
     Dates: start: 20171219, end: 20171229
  2. LIDOCAINE. [Concomitant]
     Active Substance: LIDOCAINE
     Dosage: USE AS DIRECTED
     Dates: start: 20171020, end: 20171021
  3. FUSIDIC ACID [Concomitant]
     Active Substance: FUSIDIC ACID
     Dosage: APPLY TO THE AFFECTED AREA THREE TO FOUR TIMES ...
     Dates: start: 20171207, end: 20171214
  4. NEXPLANON [Suspect]
     Active Substance: ETONOGESTREL
     Dates: start: 20180110
  5. CERELLE [Concomitant]
     Active Substance: DESOGESTREL
     Dosage: 1 DF, QD
     Dates: start: 20180110
  6. ALBUTEROL. [Concomitant]
     Active Substance: ALBUTEROL
     Dosage: AS NECESSARY
     Route: 055
     Dates: start: 20161104
  7. FLOXACILLIN [Concomitant]
     Active Substance: FLUCLOXACILLIN
     Dosage: 4 DF, QD
     Dates: start: 20171219, end: 20171226

REACTIONS (2)
  - Skin reaction [Recovering/Resolving]
  - Device expulsion [Unknown]

NARRATIVE: CASE EVENT DATE: 20180110
